FAERS Safety Report 17603043 (Version 1)
Quarter: 2020Q1

REPORT INFORMATION
  Report Type: Report from Study
  Country: None (occurrence: US)
  Receive Date: 20200330
  Receipt Date: 20200330
  Transmission Date: 20200409
  Serious: Yes (Other)
  Sender: FDA-Public Use
  Company Number: US-ABBVIE-19K-163-3199971-00

PATIENT
  Sex: Female

DRUGS (1)
  1. HUMIRA [Suspect]
     Active Substance: ADALIMUMAB
     Indication: HIDRADENITIS
     Dosage: CITRATE FREE
     Route: 058

REACTIONS (5)
  - Facial paralysis [Unknown]
  - Muscular weakness [Unknown]
  - Lymphadenectomy [Unknown]
  - Lip and/or oral cavity cancer [Recovered/Resolved]
  - Tongue neoplasm malignant stage unspecified [Recovered/Resolved]
